FAERS Safety Report 22518124 (Version 2)
Quarter: 2023Q2

REPORT INFORMATION
  Report Type: Spontaneous
  Country: FR (occurrence: FR)
  Receive Date: 20230605
  Receipt Date: 20230629
  Transmission Date: 20230721
  Serious: Yes (Other)
  Sender: FDA-Public Use
  Company Number: FR-AMGEN-FRASP2023095333

PATIENT
  Age: 56 Year
  Sex: Male
  Weight: 90 kg

DRUGS (3)
  1. LUMAKRAS [Suspect]
     Active Substance: SOTORASIB
     Indication: Product used for unknown indication
     Dosage: 960 MILLIGRAM
     Route: 048
     Dates: start: 20221021, end: 20230131
  2. LUMAKRAS [Suspect]
     Active Substance: SOTORASIB
     Dosage: 480 MILLIGRAM
     Route: 048
     Dates: start: 20230207, end: 20230226
  3. LUMAKRAS [Suspect]
     Active Substance: SOTORASIB
     Dosage: 480 MILLIGRAM
     Route: 048
     Dates: start: 20230314, end: 20230426

REACTIONS (2)
  - Disease progression [Unknown]
  - Diarrhoea [Recovered/Resolved]

NARRATIVE: CASE EVENT DATE: 20230131
